FAERS Safety Report 8801669 (Version 2)
Quarter: 2015Q2

REPORT INFORMATION
  Report Type: Report from Study
  Country: US (occurrence: US)
  Receive Date: 20120921
  Receipt Date: 20150616
  Transmission Date: 20150821
  Serious: Yes (Death)
  Sender: FDA-Public Use
  Company Number: US-ROCHE-1103774

PATIENT
  Sex: Female
  Weight: 80 kg

DRUGS (28)
  1. GEMZAR [Concomitant]
     Active Substance: GEMCITABINE HYDROCHLORIDE
     Route: 065
     Dates: start: 20051221
  2. MANNITOL. [Concomitant]
     Active Substance: MANNITOL
     Route: 065
     Dates: start: 20051205
  3. NAVELBINE [Concomitant]
     Active Substance: VINORELBINE TARTRATE
     Route: 048
     Dates: start: 20050616
  4. ANZEMET [Concomitant]
     Active Substance: DOLASETRON MESYLATE
     Route: 065
     Dates: start: 20050729
  5. MSIR [Concomitant]
     Active Substance: MORPHINE SULFATE
     Dosage: AS NEEDED
     Route: 065
  6. PLATINOL [Concomitant]
     Active Substance: CISPLATIN
     Route: 065
     Dates: start: 20051205
  7. TAXOTERE [Concomitant]
     Active Substance: DOCETAXEL
     Route: 048
     Dates: start: 20050527
  8. ANZEMET [Concomitant]
     Active Substance: DOLASETRON MESYLATE
     Route: 065
     Dates: start: 20050805
  9. NEULASTA [Concomitant]
     Active Substance: PEGFILGRASTIM
     Route: 065
  10. NEUPOGEN [Concomitant]
     Active Substance: FILGRASTIM
     Route: 065
  11. PLATINOL [Concomitant]
     Active Substance: CISPLATIN
     Route: 065
     Dates: start: 20051221
  12. PLATINOL [Concomitant]
     Active Substance: CISPLATIN
     Route: 065
     Dates: start: 20051230
  13. MANNITOL. [Concomitant]
     Active Substance: MANNITOL
     Route: 065
     Dates: start: 20051230
  14. ARANESP [Concomitant]
     Active Substance: DARBEPOETIN ALFA
     Route: 058
  15. GEMZAR [Concomitant]
     Active Substance: GEMCITABINE HYDROCHLORIDE
     Route: 065
     Dates: start: 20051205
  16. NAVELBINE [Concomitant]
     Active Substance: VINORELBINE TARTRATE
     Route: 048
     Dates: start: 20050527
  17. ANZEMET [Concomitant]
     Active Substance: DOLASETRON MESYLATE
     Route: 065
     Dates: start: 20050708
  18. ANZEMET [Concomitant]
     Active Substance: DOLASETRON MESYLATE
     Route: 065
     Dates: start: 20050722
  19. DECADRON [Concomitant]
     Active Substance: DEXAMETHASONE
     Route: 065
  20. TAXOTERE [Concomitant]
     Active Substance: DOCETAXEL
     Route: 065
  21. ARANESP [Concomitant]
     Active Substance: DARBEPOETIN ALFA
     Route: 058
  22. AVASTIN [Suspect]
     Active Substance: BEVACIZUMAB
     Indication: MALIGNANT RESPIRATORY TRACT NEOPLASM
     Route: 042
     Dates: start: 20050722
  23. GEMZAR [Concomitant]
     Active Substance: GEMCITABINE HYDROCHLORIDE
     Route: 065
     Dates: start: 20051230
  24. MANNITOL. [Concomitant]
     Active Substance: MANNITOL
     Route: 065
     Dates: start: 20051118
  25. MANNITOL. [Concomitant]
     Active Substance: MANNITOL
     Route: 065
     Dates: start: 20051221
  26. TAXOTERE [Concomitant]
     Active Substance: DOCETAXEL
     Route: 048
     Dates: start: 20050616
  27. DURAGESIC [Concomitant]
     Active Substance: FENTANYL
     Route: 065
  28. LEVAQUIN [Concomitant]
     Active Substance: LEVOFLOXACIN

REACTIONS (7)
  - Death [Fatal]
  - Dyspnoea [Unknown]
  - Pain [Unknown]
  - Oedema peripheral [Unknown]
  - Off label use [Unknown]
  - Fatigue [Unknown]
  - Mucosal inflammation [Unknown]
